FAERS Safety Report 4883246-8 (Version None)
Quarter: 2006Q1

REPORT INFORMATION
  Report Type: 
  Country: None (occurrence: None)
  Receive Date: 20060112
  Receipt Date: 20060103
  Transmission Date: 20060701
  Serious: Yes (Hospitalization)
  Sender: FDA-Public Use
  Company Number: 13159

PATIENT
  Age: 57 Year
  Sex: Male

DRUGS (5)
  1. METHOTREXATE [Suspect]
     Indication: RHEUMATOID ARTHRITIS
     Dosage: 15 MG ONCE IM
     Route: 030
     Dates: start: 20050926, end: 20050926
  2. METHOTREXATE [Suspect]
     Indication: RHEUMATOID ARTHRITIS
     Dosage: 15 MG ONCE IM
     Route: 030
     Dates: start: 20051003, end: 20051003
  3. ACIDUM FOLICUM [Suspect]
     Dosage: 5 MG 2/WK PO
     Route: 048
     Dates: end: 20051001
  4. PRIMOFENAC [Suspect]
     Indication: RHEUMATOID ARTHRITIS
     Dosage: 100 MG BID
     Dates: end: 20051001
  5. PREDNISONE [Concomitant]

REACTIONS (2)
  - HAEMORRHAGE [None]
  - LEUKOCYTOCLASTIC VASCULITIS [None]
